FAERS Safety Report 7490270-8 (Version None)
Quarter: 2011Q2

REPORT INFORMATION
  Report Type: 
  Country: None (occurrence: None)
  Receive Date: 20110519
  Receipt Date: 20100412
  Transmission Date: 20111010
  Serious: Yes (Other)
  Sender: FDA-Public Use
  Company Number: US-BRISTOL-MYERS SQUIBB COMPANY-15015498

PATIENT
  Age: 66 Year
  Sex: Female

DRUGS (2)
  1. TENOFOVIR DISOPROXIL FUMARATE [Suspect]
  2. BARACLUDE [Suspect]
     Indication: HEPATITIS B
     Dosage: PAST TREATED FOR 1 YEAR AND DISCONT
     Dates: start: 20100101

REACTIONS (4)
  - EYE PAIN [None]
  - DRUG INEFFECTIVE [None]
  - DRY EYE [None]
  - ALOPECIA [None]
